FAERS Safety Report 20488934 (Version 1)
Quarter: 2022Q1

REPORT INFORMATION
  Report Type: Spontaneous
  Country: BR (occurrence: BR)
  Receive Date: 20220218
  Receipt Date: 20220218
  Transmission Date: 20220424
  Serious: Yes (Other)
  Sender: FDA-Public Use
  Company Number: ALC2022BR000970

PATIENT
  Age: 65 Year
  Sex: Male

DRUGS (1)
  1. SIMBRINZA [Suspect]
     Active Substance: BRIMONIDINE TARTRATE\BRINZOLAMIDE
     Indication: Product used for unknown indication
     Dosage: 5 ML (CONCENTRATION: 10MG/ML + 2MG/ ML);
     Route: 047

REACTIONS (2)
  - Blindness unilateral [Unknown]
  - Product availability issue [Unknown]
